FAERS Safety Report 4383469-0 (Version None)
Quarter: 2004Q2

REPORT INFORMATION
  Report Type: 
  Country: None (occurrence: None)
  Receive Date: 20040622
  Receipt Date: 20040622
  Transmission Date: 20050107
  Serious: Yes (Hospitalization)
  Sender: FDA-Public Use
  Company Number: None

PATIENT
  Age: 41 Year
  Sex: Female
  Weight: 99 kg

DRUGS (2)
  1. CARBAMAZEPINE [Suspect]
     Indication: CONVULSION
     Dosage: 100 MG PO BID ( FOR NEW DOSE)
     Route: 048
     Dates: start: 20040203
  2. LAMOTRIGINE [Concomitant]

REACTIONS (5)
  - BACK PAIN [None]
  - CONVULSION [None]
  - DIPLOPIA [None]
  - NAUSEA [None]
  - VOMITING [None]
